FAERS Safety Report 8770708 (Version 2)
Quarter: 2012Q4

REPORT INFORMATION
  Report Type: Report from Study
  Country: JP (occurrence: JP)
  Receive Date: 20120906
  Receipt Date: 20120930
  Transmission Date: 20130627
  Serious: Yes (Hospitalization, Other)
  Sender: FDA-Public Use
  Company Number: JP-009507513-1208JPN012248

PATIENT
  Age: 49 Year
  Sex: Female
  Weight: 63 kg

DRUGS (17)
  1. PEGINTRON [Suspect]
     Indication: HEPATITIS C
     Dosage: 1.5 Microgram per kilogram, qw
     Route: 058
  2. PEGINTRON [Suspect]
     Dosage: UNK
     Route: 058
     Dates: end: 20120412
  3. PEGINTRON [Suspect]
     Dosage: 40 Microgram, qw
     Route: 058
     Dates: start: 20120426
  4. PEGINTRON [Suspect]
     Dosage: 80 Microgram, qw
     Route: 058
     Dates: start: 20120501, end: 20120809
  5. REBETOL [Suspect]
     Indication: HEPATITIS C
     Dosage: 800 mg, qd
     Route: 048
     Dates: start: 20120223, end: 20120314
  6. REBETOL [Suspect]
     Dosage: 400 mg, qd
     Route: 048
     Dates: start: 20120315, end: 20120328
  7. REBETOL [Suspect]
     Dosage: 200 mg, qd
     Route: 048
     Dates: start: 20120329
  8. REBETOL [Suspect]
     Dosage: UNK
     Route: 048
     Dates: end: 20120412
  9. REBETOL [Suspect]
     Dosage: 200 mg, qd
     Route: 048
     Dates: start: 20120426
  10. REBETOL [Suspect]
     Dosage: 400 mg, qd
     Route: 048
     Dates: start: 20120501
  11. REBETOL [Suspect]
     Dosage: 600 UNK, UNK
     Route: 048
     Dates: start: 20120524, end: 2012
  12. REBETOL [Suspect]
     Dosage: 400 UNK, UNK
     Route: 048
     Dates: start: 20120614
  13. REBETOL [Suspect]
     Dosage: 600 UNK, UNK
     Route: 048
     Dates: start: 20120621
  14. REBETOL [Suspect]
     Dosage: 400 UNK, UNK
     Route: 048
     Dates: start: 20120705
  15. REBETOL [Suspect]
     Dosage: 600 UNK, UNK
     Route: 048
     Dates: start: 20120712, end: 20120716
  16. TELAVIC [Suspect]
     Indication: HEPATITIS C
     Dosage: 1500 mg, qd
     Route: 048
     Dates: start: 20120223
  17. TELAVIC [Suspect]
     Dosage: UNK
     Route: 048
     Dates: end: 20120412

REACTIONS (2)
  - Restless legs syndrome [Recovering/Resolving]
  - Restless legs syndrome [Not Recovered/Not Resolved]
